FAERS Safety Report 4314529-8 (Version None)
Quarter: 2004Q1

REPORT INFORMATION
  Report Type: 
  Country: None (occurrence: None)
  Receive Date: 20040308
  Receipt Date: 20040225
  Transmission Date: 20041129
  Serious: Yes (Death, Hospitalization)
  Sender: FDA-Public Use
  Company Number: 2004194867FR

PATIENT
  Age: 78 Year
  Sex: Female
  Weight: 88 kg

DRUGS (5)
  1. CELEBREX [Suspect]
     Indication: OSTEOARTHRITIS
     Dosage: ORAL
     Route: 048
     Dates: end: 20040103
  2. COVERSYL (PERINDOPRIL) [Suspect]
     Dosage: 4 MG
     Dates: end: 20040103
  3. LASIX [Suspect]
     Dosage: 40 MG
     Dates: end: 20040103
  4. DAFLON (DIOSMIN) [Concomitant]
  5. HYPERIUM (RILMENIDINE) [Concomitant]

REACTIONS (5)
  - ANXIETY [None]
  - BLOOD PH DECREASED [None]
  - CARDIAC FAILURE [None]
  - DRUG INTERACTION [None]
  - RENAL FAILURE ACUTE [None]
